FAERS Safety Report 8803241 (Version 1)
Quarter: 2012Q4

REPORT INFORMATION
  Report Type: 
  Country: US (occurrence: US)
  Receive Date: 20120924
  Receipt Date: 20120924
  Transmission Date: 20130627
  Serious: Yes (Other)
  Sender: FDA-Public Use
  Company Number: US-TEVA-359921USA

PATIENT
  Age: 44 Year
  Sex: Female

DRUGS (1)
  1. COPAXONE [Suspect]
     Indication: MULTIPLE SCLEROSIS
     Dates: start: 20050510

REACTIONS (7)
  - Transient ischaemic attack [Unknown]
  - Atrial fibrillation [Unknown]
  - Dizziness [Unknown]
  - Palpitations [Unknown]
  - Palpitations [Unknown]
  - Movement disorder [Unknown]
  - Hypoaesthesia oral [Unknown]
